FAERS Safety Report 5697437-X (Version None)
Quarter: 2008Q2

REPORT INFORMATION
  Report Type: 
  Country: None (occurrence: None)
  Receive Date: 20080407
  Receipt Date: 20080327
  Transmission Date: 20081010
  Serious: Yes (Hospitalization)
  Sender: FDA-Public Use
  Company Number: PHHY2008EC03986

PATIENT
  Age: 75 Year
  Sex: Female

DRUGS (4)
  1. DIOVAN HCT [Suspect]
     Indication: HYPERTENSION
     Dosage: 160/25 MG / DAY, QD
     Route: 048
  2. AMLODIPINE [Concomitant]
     Dosage: 5 MG, UNK
  3. GLYBURIDE [Concomitant]
     Indication: DIABETES MELLITUS
  4. OMEZOL [Concomitant]

REACTIONS (3)
  - COUGH [None]
  - GASTROINTESTINAL HYPOMOTILITY [None]
  - SNEEZING [None]
